FAERS Safety Report 6188882-7 (Version None)
Quarter: 2009Q2

REPORT INFORMATION
  Report Type: 
  Country: None (occurrence: None)
  Receive Date: 20090513
  Receipt Date: 20090504
  Transmission Date: 20091009
  Serious: Yes (Other)
  Sender: FDA-Public Use
  Company Number: PHEH2008US00481

PATIENT
  Sex: Male

DRUGS (25)
  1. AREDIA [Suspect]
  2. ZOMETA [Suspect]
  3. ANTICOAGULANTS [Concomitant]
  4. PROSCAR [Concomitant]
     Dosage: 5 MG, UNK
     Route: 048
  5. QUININE SULFATE [Concomitant]
     Route: 048
  6. CEPHALEXIN [Concomitant]
     Route: 048
  7. LEVAQUIN [Concomitant]
  8. ATORVASTATIN [Concomitant]
  9. CELEBREX [Concomitant]
  10. CALCIUM [Concomitant]
  11. CYMBALTA [Concomitant]
  12. GABAPENTIN [Concomitant]
  13. TINZAPARIN SODIUM [Concomitant]
  14. INSULIN [Concomitant]
  15. THALOMID [Concomitant]
  16. LEUKINE [Concomitant]
  17. CALCITRIOL [Concomitant]
  18. CYCLOPHOSPHAMIDE [Concomitant]
  19. NEXIUM [Concomitant]
  20. MICRO-K [Concomitant]
  21. VIAGRA [Concomitant]
  22. REQUIP [Concomitant]
  23. VIVELLE-DOT [Concomitant]
     Dosage: 0.1 MG, QD
     Route: 062
  24. PROVIGIL [Concomitant]
  25. LIDODERM [Concomitant]
     Route: 062

REACTIONS (24)
  - AGRANULOCYTOSIS [None]
  - ANAEMIA [None]
  - ARTHRALGIA [None]
  - BENIGN GASTRIC NEOPLASM [None]
  - CARDIAC PACEMAKER INSERTION [None]
  - CATARACT [None]
  - CHEST PAIN [None]
  - DEPRESSION [None]
  - FATIGUE [None]
  - HAEMATURIA [None]
  - HYPERSOMNIA [None]
  - MALAISE [None]
  - MENTAL DISORDER [None]
  - METASTASES TO BONE [None]
  - METASTASES TO SKIN [None]
  - NECK INJURY [None]
  - OSTEONECROSIS [None]
  - OSTEOPOROSIS [None]
  - PAIN [None]
  - RENAL IMPAIRMENT [None]
  - SINUS ARRHYTHMIA [None]
  - SLEEP APNOEA SYNDROME [None]
  - SYNCOPE [None]
  - VENOUS THROMBOSIS [None]
